FAERS Safety Report 8336199-4 (Version None)
Quarter: 2012Q2

REPORT INFORMATION
  Report Type: 
  Country: None (occurrence: None)
  Receive Date: 20120504
  Receipt Date: 20120427
  Transmission Date: 20120825
  Serious: Yes (Other)
  Sender: FDA-Public Use
  Company Number: US-CELGENEUS-163-21880-12043226

PATIENT
  Sex: Male
  Weight: 131.66 kg

DRUGS (16)
  1. LEUKINE [Concomitant]
     Route: 065
  2. METOPROLOL TARTRATE [Concomitant]
     Route: 065
  3. METALAZE [Concomitant]
     Route: 065
  4. XEROXOLIN [Concomitant]
     Route: 065
  5. ATIVAN [Concomitant]
     Route: 065
  6. COMPAZINE [Concomitant]
     Route: 065
  7. CYLERON [Concomitant]
     Route: 065
  8. REGLAN [Concomitant]
     Route: 065
  9. PROTONIX [Concomitant]
     Route: 065
  10. METOLAZONE [Concomitant]
     Route: 065
  11. NEURONTIN [Concomitant]
     Route: 065
  12. TEMAZEPAM [Concomitant]
     Route: 065
  13. REVLIMID [Suspect]
     Indication: NON-HODGKIN'S LYMPHOMA
     Dosage: 10 MILLIGRAM
     Route: 048
     Dates: start: 20120301
  14. RASBURICASE [Concomitant]
     Route: 065
  15. LEVEMIR [Concomitant]
     Route: 065
  16. NOVOLOG [Concomitant]
     Route: 065

REACTIONS (4)
  - NAUSEA [None]
  - GASTROINTESTINAL OEDEMA [None]
  - VOMITING [None]
  - PULMONARY OEDEMA [None]
